FAERS Safety Report 5758930-4 (Version None)
Quarter: 2008Q2

REPORT INFORMATION
  Report Type: 
  Country: None (occurrence: None)
  Receive Date: 20080604
  Receipt Date: 20080528
  Transmission Date: 20081010
  Serious: Yes (Hospitalization)
  Sender: FDA-Public Use
  Company Number: US-GILEAD-2008-0016632

PATIENT
  Sex: Female
  Weight: 104.42 kg

DRUGS (10)
  1. LETAIRIS [Suspect]
     Indication: PULMONARY HYPERTENSION
     Route: 048
  2. METFORMIN HCL [Concomitant]
     Route: 048
  3. KLOR-CON [Concomitant]
     Route: 048
  4. GLIPIZIDE [Concomitant]
     Route: 048
  5. SPIRONOLACTONE [Concomitant]
     Route: 048
  6. LOPRESSOR [Concomitant]
     Route: 048
  7. LASIX [Concomitant]
     Route: 048
  8. PROZAC [Concomitant]
     Route: 048
  9. ASPIR-81 [Concomitant]
     Route: 048
  10. TRAZODONE HCL [Concomitant]
     Route: 048

REACTIONS (4)
  - ANAEMIA [None]
  - DYSPNOEA [None]
  - FLUID RETENTION [None]
  - HYPERLIPIDAEMIA [None]
